FAERS Safety Report 19051196 (Version 1)
Quarter: 2021Q1

REPORT INFORMATION
  Report Type: Spontaneous
  Country: DE (occurrence: DE)
  Receive Date: 20210324
  Receipt Date: 20210324
  Transmission Date: 20210420
  Serious: Yes (Other)
  Sender: FDA-Public Use
  Company Number: NVSC2021DE056427

PATIENT
  Sex: Female

DRUGS (1)
  1. LEVETIRACETAM. [Suspect]
     Active Substance: LEVETIRACETAM
     Indication: EPILEPSY
     Dosage: UNK
     Route: 065

REACTIONS (9)
  - Mass [Unknown]
  - Infertility [Unknown]
  - Thyroid disorder [Unknown]
  - Seizure [Unknown]
  - Haemorrhage [Unknown]
  - Product use issue [Unknown]
  - Adverse drug reaction [Unknown]
  - Drug ineffective [Unknown]
  - Alopecia [Unknown]
